FAERS Safety Report 9074069 (Version 1)
Quarter: 2013Q1

REPORT INFORMATION
  Report Type: Report from Study
  Country: US (occurrence: US)
  Receive Date: 20130129
  Receipt Date: 20130129
  Transmission Date: 20140127
  Serious: No
  Sender: FDA-Public Use
  Company Number: US-ABBOTT-12P-163-0918835-00

PATIENT
  Age: 45 Year
  Sex: Male

DRUGS (8)
  1. HUMIRA 40 MG/0.8 ML PEN [Suspect]
     Indication: CROHN^S DISEASE
     Dates: start: 20110209, end: 20120307
  2. HUMIRA 40 MG/0.8 ML PEN [Suspect]
     Dates: start: 20110308
  3. QUESTRAN [Concomitant]
     Indication: DIARRHOEA
     Dosage: 1 SCOOP, 1 IN 1 D
  4. POTASSIUM [Concomitant]
     Indication: GENERAL PHYSICAL HEALTH DETERIORATION
     Dosage: SUPPLEMENT
  5. POTASSIUM [Concomitant]
     Indication: DEHYDRATION
  6. POTASSIUM [Concomitant]
     Indication: GENERAL PHYSICAL HEALTH DETERIORATION
  7. MAGNESIUM [Concomitant]
     Indication: DEHYDRATION
     Dosage: SUPPLEMENT
  8. 6MP [Concomitant]
     Indication: CROHN^S DISEASE

REACTIONS (5)
  - Dry skin [Not Recovered/Not Resolved]
  - Pruritus [Not Recovered/Not Resolved]
  - Erythema [Not Recovered/Not Resolved]
  - Rash macular [Not Recovered/Not Resolved]
  - Rash [Not Recovered/Not Resolved]
